FAERS Safety Report 7501941-9 (Version None)
Quarter: 2011Q2

REPORT INFORMATION
  Report Type: 
  Country: None (occurrence: None)
  Receive Date: 20110525
  Receipt Date: 20110518
  Transmission Date: 20111010
  Serious: No
  Sender: FDA-Public Use
  Company Number: US-PFIZER INC-2011108262

PATIENT
  Sex: Male
  Weight: 97.506 kg

DRUGS (2)
  1. VIAGRA [Suspect]
     Indication: ERECTILE DYSFUNCTION
     Dosage: 50 MG, UNK
     Route: 048
     Dates: start: 20090901
  2. CITALOPRAM [Concomitant]
     Indication: POST-TRAUMATIC STRESS DISORDER
     Dosage: 60 MG, DAILY
     Dates: start: 20080101

REACTIONS (3)
  - DYSPEPSIA [None]
  - INSOMNIA [None]
  - ERUCTATION [None]
